FAERS Safety Report 15918134 (Version 1)
Quarter: 2019Q1

REPORT INFORMATION
  Report Type: Report from Study
  Country: CZ (occurrence: CZ)
  Receive Date: 20190205
  Receipt Date: 20190205
  Transmission Date: 20190417
  Serious: Yes (Other)
  Sender: FDA-Public Use
  Company Number: CZ-TEVA-2019-CZ-1006737

PATIENT
  Sex: Female

DRUGS (4)
  1. MIFLONID [Concomitant]
     Active Substance: BUDESONIDE
  2. LORATADINE. [Concomitant]
     Active Substance: LORATADINE
  3. COPAXONE [Suspect]
     Active Substance: GLATIRAMER ACETATE
     Indication: MULTIPLE SCLEROSIS
     Route: 058
     Dates: start: 20180403
  4. ECOSAL [Concomitant]

REACTIONS (4)
  - Pruritus [Not Recovered/Not Resolved]
  - Skin burning sensation [Not Recovered/Not Resolved]
  - Insomnia [Not Recovered/Not Resolved]
  - Patient dissatisfaction with treatment [Unknown]
